FAERS Safety Report 10094697 (Version 1)
Quarter: 2014Q2

REPORT INFORMATION
  Report Type: Spontaneous
  Country: JP (occurrence: JP)
  Receive Date: 20140422
  Receipt Date: 20140422
  Transmission Date: 20141212
  Serious: Yes (Other)
  Sender: FDA-Public Use
  Company Number: JP-SA-2014SA050667

PATIENT
  Age: 50 Year
  Sex: Female

DRUGS (2)
  1. ALLEGRA FX [Suspect]
     Indication: RHINITIS ALLERGIC
     Dosage: DAILY DOSE OF 2 TABLETS
     Route: 048
  2. BIOFERMIN [Concomitant]
     Indication: DIARRHOEA

REACTIONS (4)
  - Diarrhoea [Unknown]
  - Thirst [Unknown]
  - Glossodynia [Unknown]
  - Somnolence [Unknown]
